FAERS Safety Report 16101327 (Version 3)
Quarter: 2019Q2

REPORT INFORMATION
  Report Type: Spontaneous
  Country: HU (occurrence: HU)
  Receive Date: 20190321
  Receipt Date: 20190412
  Transmission Date: 20190711
  Serious: Yes (Life-Threatening, Other)
  Sender: FDA-Public Use
  Company Number: HU-PFIZER INC-2019121260

PATIENT
  Age: 51 Year
  Sex: Female

DRUGS (3)
  1. ZYPADHERA [Suspect]
     Active Substance: OLANZAPINE PAMOATE
     Indication: RESTLESSNESS
     Dosage: UNK, FORMULATION: POWDER AND SOLVENT FOR PROLONGED-RELEASE SUSPENSION FOR INJECTION
     Route: 030
     Dates: start: 2009
  2. XANAX [Suspect]
     Active Substance: ALPRAZOLAM
     Dosage: UNK
     Route: 048
  3. ZYPADHERA [Suspect]
     Active Substance: OLANZAPINE PAMOATE
     Indication: SCHIZOPHRENIA

REACTIONS (17)
  - Speech disorder [Recovering/Resolving]
  - Choking sensation [Recovering/Resolving]
  - Wound [Recovering/Resolving]
  - Tongue disorder [Recovering/Resolving]
  - Impaired healing [Recovering/Resolving]
  - Dysphonia [Recovering/Resolving]
  - Skin infection [Recovering/Resolving]
  - Respiratory disorder [Recovering/Resolving]
  - Fatigue [Recovering/Resolving]
  - Asthenia [Recovering/Resolving]
  - Sluggishness [Recovering/Resolving]
  - Headache [Recovering/Resolving]
  - Somnolence [Recovering/Resolving]
  - Tongue movement disturbance [Recovering/Resolving]
  - Fatigue [Recovering/Resolving]
  - Infection susceptibility increased [Recovering/Resolving]
  - Obesity [Recovering/Resolving]

NARRATIVE: CASE EVENT DATE: 20180102
